FAERS Safety Report 6902489-2 (Version None)
Quarter: 2010Q3

REPORT INFORMATION
  Report Type: 
  Country: None (occurrence: None)
  Receive Date: 20100803
  Receipt Date: 20100730
  Transmission Date: 20110219
  Serious: Yes (Hospitalization)
  Sender: FDA-Public Use
  Company Number: US-AMGEN-KDC420593

PATIENT
  Sex: Male

DRUGS (13)
  1. NEUPOGEN [Suspect]
     Indication: NON-HODGKIN'S LYMPHOMA
     Route: 058
     Dates: start: 20090323, end: 20090817
  2. RITUXIMAB [Suspect]
     Route: 042
     Dates: end: 20090817
  3. METHOTREXATE [Suspect]
     Route: 042
     Dates: end: 20090817
  4. CYTARABINE [Suspect]
     Route: 042
     Dates: end: 20090817
  5. LEUCOVORIN CALCIUM [Suspect]
     Route: 048
     Dates: end: 20090817
  6. ALBUTEROL [Concomitant]
  7. BENAZEPRIL HYDROCHLORIDE [Concomitant]
  8. GLIPIZIDE [Concomitant]
  9. LOTREL (NOVARTIS PHARMACEUTICALS) [Concomitant]
  10. OMEPRAZOLE [Concomitant]
  11. TOPROL-XL [Concomitant]
  12. ZYRTEC [Concomitant]
  13. CALCIUM [Concomitant]

REACTIONS (2)
  - METASTASIS [None]
  - RENAL CELL CARCINOMA [None]
